FAERS Safety Report 20902405 (Version 3)
Quarter: 2022Q3

REPORT INFORMATION
  Report Type: Report from Study
  Country: DE (occurrence: DE)
  Receive Date: 20220601
  Receipt Date: 20220708
  Transmission Date: 20221026
  Serious: Yes (Death, Life-Threatening)
  Sender: FDA-Public Use
  Company Number: DE-PFIZER INC-202200050886

PATIENT
  Age: 14 Day
  Sex: Female

DRUGS (1)
  1. HYDROCORTISONE [Suspect]
     Active Substance: HYDROCORTISONE
     Indication: Hypotension
     Route: 065

REACTIONS (5)
  - Aspergillus infection [Fatal]
  - Intestinal perforation [Fatal]
  - Inflammation [Fatal]
  - Multiple organ dysfunction syndrome [Fatal]
  - Mucormycosis [Unknown]
